FAERS Safety Report 7521664-X (Version None)
Quarter: 2011Q2

REPORT INFORMATION
  Report Type: 
  Country: None (occurrence: None)
  Receive Date: 20110524
  Receipt Date: 20110517
  Transmission Date: 20111010
  Serious: Yes (Other)
  Sender: FDA-Public Use
  Company Number: 1000020974

PATIENT
  Age: 41 Year
  Sex: Male

DRUGS (3)
  1. FENTANYL-100 [Suspect]
     Dosage: TRANSDERMAL
     Route: 062
  2. LEXAPRO [Suspect]
     Dosage: ORAL
     Route: 048
  3. OXYCODONE HCL [Concomitant]

REACTIONS (4)
  - DRUG INTERACTION [None]
  - CRYING [None]
  - SUICIDAL IDEATION [None]
  - DEPRESSION [None]
